FAERS Safety Report 17988632 (Version 5)
Quarter: 2021Q1

REPORT INFORMATION
  Report Type: Spontaneous
  Country: US (occurrence: US)
  Receive Date: 20200707
  Receipt Date: 20210316
  Transmission Date: 20210419
  Serious: Yes (Other)
  Sender: FDA-Public Use
  Company Number: US-PFIZER INC-2020259906

PATIENT
  Age: 71 Year
  Sex: Female

DRUGS (1)
  1. LYRICA [Suspect]
     Active Substance: PREGABALIN
     Indication: TYPE 2 DIABETES MELLITUS
     Dosage: 75 MG, DAILY
     Route: 048

REACTIONS (4)
  - Neuropathy peripheral [Unknown]
  - Blood glucose abnormal [Unknown]
  - Intentional product use issue [Unknown]
  - Off label use [Unknown]
